FAERS Safety Report 7603627-9 (Version None)
Quarter: 2011Q3

REPORT INFORMATION
  Report Type: 
  Country: None (occurrence: None)
  Receive Date: 20110712
  Receipt Date: 20110707
  Transmission Date: 20111222
  Serious: Yes (Other)
  Sender: FDA-Public Use
  Company Number: US-PFIZER INC-2011153367

PATIENT
  Age: 35 Year
  Sex: Female
  Weight: 58.957 kg

DRUGS (2)
  1. HYDROCODONE [Concomitant]
     Indication: PAIN
     Dosage: 1 OR 2 EVERY 6 HOURS, AS NEEDED
  2. LYRICA [Suspect]
     Indication: NEURALGIA
     Dosage: 50 MG, 2X/DAY
     Route: 048
     Dates: start: 20110617

REACTIONS (5)
  - STUPOR [None]
  - SOMNOLENCE [None]
  - DRUG EFFECT DECREASED [None]
  - FALL [None]
  - DIZZINESS [None]
